FAERS Safety Report 10031741 (Version 1)
Quarter: 2014Q1

REPORT INFORMATION
  Report Type: Spontaneous
  Country: US (occurrence: US)
  Receive Date: 20140324
  Receipt Date: 20140324
  Transmission Date: 20141002
  Serious: No
  Sender: FDA-Public Use
  Company Number: US-PFIZER INC-2014083634

PATIENT
  Age: 37 Year
  Sex: Female
  Weight: 89.34 kg

DRUGS (5)
  1. CHANTIX [Suspect]
     Indication: SMOKING CESSATION THERAPY
     Dosage: UNK
  2. LITHIUM [Concomitant]
     Indication: BIPOLAR DISORDER
     Dosage: 600 MG, 2X/DAY
  3. TEGRETOL [Concomitant]
     Indication: BIPOLAR DISORDER
     Dosage: 200 MG, DAILY
  4. ABILIFY [Concomitant]
     Indication: BIPOLAR DISORDER
     Dosage: 30 MG, DAILY
  5. VALIUM [Concomitant]
     Indication: BIPOLAR DISORDER
     Dosage: 10 MG, 2X/DAY

REACTIONS (4)
  - Anxiety [Unknown]
  - Disturbance in attention [Unknown]
  - Abnormal dreams [Unknown]
  - Nervousness [Unknown]
